FAERS Safety Report 14203467 (Version 4)
Quarter: 2018Q1

REPORT INFORMATION
  Report Type: Spontaneous
  Country: US (occurrence: US)
  Receive Date: 20171120
  Receipt Date: 20180125
  Transmission Date: 20180508
  Serious: Yes (Hospitalization, Other)
  Sender: FDA-Public Use
  Company Number: US-UNITED THERAPEUTICS-UNT-2017-011881

PATIENT
  Sex: Female

DRUGS (5)
  1. REMODULIN [Suspect]
     Active Substance: TREPROSTINIL
     Indication: PULMONARY ARTERIAL HYPERTENSION
     Dosage: 0.027 ?G/KG, CONTINUING
     Route: 058
     Dates: start: 20170622
  2. REMODULIN [Suspect]
     Active Substance: TREPROSTINIL
     Dosage: 0.0405 ?G/KG, 0.026ML/HR, CONTINUING
     Route: 058
     Dates: start: 201706
  3. REMODULIN [Suspect]
     Active Substance: TREPROSTINIL
     Dosage: 0.0345 ?G/KG, CONTINUING
     Route: 058
  4. REMODULIN [Suspect]
     Active Substance: TREPROSTINIL
     Dosage: 0.020 ?G/KG, CONTINUING
     Route: 058
  5. REMODULIN [Suspect]
     Active Substance: TREPROSTINIL
     Dosage: 0.036 ?G/KG, CONTINUING
     Route: 058

REACTIONS (16)
  - Device infusion issue [Recovered/Resolved]
  - Fluid retention [Unknown]
  - Pain in jaw [Unknown]
  - Infusion site pain [Unknown]
  - Swelling [Unknown]
  - Oxygen saturation decreased [Unknown]
  - Drug intolerance [Unknown]
  - Headache [Unknown]
  - Myalgia [Unknown]
  - Nausea [Unknown]
  - Right ventricular failure [Unknown]
  - Inflammation [Unknown]
  - Diarrhoea [Unknown]
  - Ischaemic stroke [Unknown]
  - Restlessness [Unknown]
  - Arthralgia [Unknown]

NARRATIVE: CASE EVENT DATE: 2017
